FAERS Safety Report 5163968-4 (Version None)
Quarter: 2006Q4

REPORT INFORMATION
  Report Type: 
  Country: None (occurrence: None)
  Receive Date: 20061204
  Receipt Date: 20061031
  Transmission Date: 20070319
  Serious: Yes (Hospitalization)
  Sender: FDA-Public Use
  Company Number: HQWYE160102NOV06

PATIENT
  Sex: Male
  Weight: 53 kg

DRUGS (10)
  1. ENBREL [Suspect]
     Indication: RHEUMATOID ARTHRITIS
     Route: 058
     Dates: start: 20060609, end: 20060922
  2. PREDONINE [Suspect]
     Route: 048
     Dates: start: 20051201, end: 20060511
  3. PREDONINE [Suspect]
     Route: 048
     Dates: start: 20060512, end: 20061027
  4. RHEUMATREX [Suspect]
     Indication: RHEUMATOID ARTHRITIS
     Route: 048
     Dates: start: 20050901, end: 20051001
  5. RHEUMATREX [Suspect]
     Route: 048
     Dates: start: 20051001, end: 20060112
  6. RHEUMATREX [Suspect]
     Route: 048
     Dates: start: 20060113, end: 20060928
  7. ISCOTIN [Concomitant]
     Indication: ANTIBIOTIC PROPHYLAXIS
     Route: 048
     Dates: start: 20060512, end: 20061027
  8. LOXONIN [Concomitant]
     Route: 065
  9. ULGUT [Concomitant]
     Route: 048
     Dates: start: 20000818, end: 20061027
  10. BENET [Concomitant]
     Route: 048
     Dates: start: 20051202, end: 20061027

REACTIONS (4)
  - ARTHRALGIA [None]
  - BACTERIAL INFECTION [None]
  - DRUG INEFFECTIVE [None]
  - PLEURISY [None]
